FAERS Safety Report 15373537 (Version 2)
Quarter: 2018Q3

REPORT INFORMATION
  Report Type: Spontaneous
  Country: JP (occurrence: JP)
  Receive Date: 20180912
  Receipt Date: 20180913
  Transmission Date: 20181010
  Serious: Yes (Death, Hospitalization)
  Sender: FDA-Public Use
  Company Number: JP-ROCHE-2183516

PATIENT
  Age: 7 Decade
  Sex: Male

DRUGS (1)
  1. ACTEMRA [Suspect]
     Active Substance: TOCILIZUMAB
     Indication: CASTLEMAN^S DISEASE
     Dosage: DOSAGE IS UNCERTAIN.?LAST DOSE IN 2015
     Route: 065
     Dates: start: 201509

REACTIONS (4)
  - Intentional product use issue [Unknown]
  - Epstein-Barr virus associated lymphoproliferative disorder [Fatal]
  - Platelet count decreased [Unknown]
  - Off label use [Unknown]
